FAERS Safety Report 22185365 (Version 1)
Quarter: 2023Q2

REPORT INFORMATION
  Report Type: Spontaneous
  Country: US (occurrence: US)
  Receive Date: 20230407
  Receipt Date: 20230407
  Transmission Date: 20230722
  Serious: Yes (Hospitalization, Other)
  Sender: FDA-Public Use
  Company Number: US-009507513-2304USA001748

PATIENT
  Age: 72 Year
  Sex: Male

DRUGS (6)
  1. KEYTRUDA [Suspect]
     Active Substance: PEMBROLIZUMAB
     Indication: Metaplastic breast carcinoma
     Dosage: 200 MILLIGRAM, Q3W
  2. ADRIAMYCIN [Suspect]
     Active Substance: DOXORUBICIN HYDROCHLORIDE
     Indication: Metaplastic breast carcinoma
     Dosage: UNK UNK, CYCLICAL
  3. CYCLOPHOSPHAMIDE [Suspect]
     Active Substance: CYCLOPHOSPHAMIDE
     Indication: Metaplastic breast carcinoma
     Dosage: UNK UNK, CYCLICAL
  4. NEULASTA [Suspect]
     Active Substance: PEGFILGRASTIM
     Indication: Metaplastic breast carcinoma
     Dosage: UNK UNK, CYCLICAL
  5. PACLITAXEL [Suspect]
     Active Substance: PACLITAXEL
     Indication: Metaplastic breast carcinoma
     Dosage: UNK UNK, CYCLICAL
  6. CARBOPLATIN [Suspect]
     Active Substance: CARBOPLATIN
     Indication: Metaplastic breast carcinoma
     Dosage: UNK UNK, CYCLICAL

REACTIONS (4)
  - Febrile neutropenia [Unknown]
  - Sepsis [Unknown]
  - Drug intolerance [Unknown]
  - Off label use [Unknown]
